FAERS Safety Report 5706432-3 (Version None)
Quarter: 2008Q2

REPORT INFORMATION
  Report Type: 
  Country: None (occurrence: None)
  Receive Date: 20080411
  Receipt Date: 20080403
  Transmission Date: 20081010
  Serious: Yes (Hospitalization, Other)
  Sender: FDA-Public Use
  Company Number: 18877

PATIENT
  Age: 60 Year
  Sex: Female

DRUGS (6)
  1. PAMIDRONATE DISODIUM [Suspect]
     Indication: METASTASES TO BONE
     Dosage: 90 MG OTH  IV
     Route: 042
     Dates: start: 20080319, end: 20080319
  2. PAMIDRONATE DISODIUM [Suspect]
     Indication: PAIN
     Dosage: 90 MG OTH  IV
     Route: 042
     Dates: start: 20080319, end: 20080319
  3. EXEMESTANE [Concomitant]
  4. OMEPRAZOLE [Concomitant]
  5. VOLTAREN /00372301/ [Concomitant]
  6. CIPROFLOXACILLIN [Concomitant]

REACTIONS (12)
  - ANAPHYLACTIC REACTION [None]
  - BLISTER [None]
  - CATHETER RELATED COMPLICATION [None]
  - DRUG HYPERSENSITIVITY [None]
  - ERYTHEMA [None]
  - INFUSION SITE PAIN [None]
  - INFUSION SITE REACTION [None]
  - NO THERAPEUTIC RESPONSE [None]
  - OEDEMA PERIPHERAL [None]
  - PALLOR [None]
  - RASH [None]
  - SWELLING [None]
